FAERS Safety Report 9592934 (Version 1)
Quarter: 2013Q4

REPORT INFORMATION
  Report Type: Report from Study
  Country: CA (occurrence: CA)
  Receive Date: 20131004
  Receipt Date: 20131004
  Transmission Date: 20140711
  Serious: Yes (Other)
  Sender: FDA-Public Use
  Company Number: PHHY2013CA110718

PATIENT
  Sex: Female

DRUGS (1)
  1. TASIGNA [Suspect]
     Indication: CHRONIC MYELOID LEUKAEMIA
     Dosage: 300 MG, Q12H (150 MG TWICE IN MORNIG AND 150 MG TWICE IN NIGHT
     Route: 048

REACTIONS (2)
  - Kidney infection [Unknown]
  - Dyspnoea [Recovering/Resolving]
